FAERS Safety Report 4302019-8 (Version None)
Quarter: 2004Q1

REPORT INFORMATION
  Report Type: 
  Country: None (occurrence: None)
  Receive Date: 20040220
  Receipt Date: 20040212
  Transmission Date: 20041129
  Serious: Yes (Other)
  Sender: FDA-Public Use
  Company Number: 2003-11-0332

PATIENT
  Age: 39 Year
  Sex: Male

DRUGS (2)
  1. PEG-INTRON [Suspect]
     Indication: HEPATITIS C
     Dosage: 125 MCG QWK SUBCUTANEOUS
     Route: 058
     Dates: start: 20030805, end: 20031104
  2. RIBAVIRIN [Suspect]
     Indication: HEPATITIS C
     Dosage: 1000 MG QD ORAL
     Route: 048
     Dates: start: 20030805, end: 20031104

REACTIONS (3)
  - MUSCLE DISORDER [None]
  - MYALGIA [None]
  - NEPHROLITHIASIS [None]
